FAERS Safety Report 8350396-3 (Version None)
Quarter: 2012Q2

REPORT INFORMATION
  Report Type: 
  Country: None (occurrence: None)
  Receive Date: 20120510
  Receipt Date: 20120504
  Transmission Date: 20120825
  Serious: Yes (Hospitalization)
  Sender: FDA-Public Use
  Company Number: US-BAYER-201031850NA

PATIENT
  Age: 19 Year
  Sex: Female
  Weight: 95.238 kg

DRUGS (5)
  1. GYNAZOLE [Concomitant]
     Dosage: 2 %, UNK
     Route: 061
     Dates: start: 20080508
  2. VITAMINS, OTHER COMBINATIONS [Concomitant]
     Indication: PRENATAL CARE
     Dosage: UNK
     Route: 048
     Dates: start: 20080508
  3. LEXAPRO [Concomitant]
  4. YAZ [Suspect]
     Indication: CONTRACEPTION
     Dosage: UNK
     Route: 048
     Dates: start: 20080801, end: 20090701
  5. YAZ [Suspect]
     Indication: ACNE

REACTIONS (11)
  - ABDOMINAL DISTENSION [None]
  - ANXIETY [None]
  - CHOLELITHIASIS [None]
  - CHOLECYSTECTOMY [None]
  - DIARRHOEA [None]
  - DEPRESSION [None]
  - SCAR [None]
  - DYSPEPSIA [None]
  - CONSTIPATION [None]
  - PANCREATITIS [None]
  - FLATULENCE [None]
